FAERS Safety Report 14691613 (Version 2)
Quarter: 2019Q1

REPORT INFORMATION
  Report Type: Spontaneous
  Country: US (occurrence: US)
  Receive Date: 20180328
  Receipt Date: 20190114
  Transmission Date: 20190417
  Serious: No
  Sender: FDA-Public Use
  Company Number: US-ASTRAZENECA-2018SE30986

PATIENT
  Age: 78 Year
  Sex: Female
  Weight: 86.2 kg

DRUGS (3)
  1. TRULICITY [Concomitant]
     Active Substance: DULAGLUTIDE
  2. INSULIN [Concomitant]
     Active Substance: INSULIN NOS
  3. BYDUREON [Suspect]
     Active Substance: EXENATIDE
     Indication: TYPE 2 DIABETES MELLITUS
     Route: 058
     Dates: start: 2017

REACTIONS (11)
  - Injection site swelling [Recovered/Resolved]
  - Intervertebral disc degeneration [Unknown]
  - Bursitis [Unknown]
  - Injection site pain [Recovered/Resolved]
  - Arthritis [Unknown]
  - Pain in extremity [Recovered/Resolved]
  - Blood glucose decreased [Recovered/Resolved]
  - Musculoskeletal discomfort [Unknown]
  - Hypersensitivity [Unknown]
  - Weight increased [Unknown]
  - Injection site mass [Recovered/Resolved]

NARRATIVE: CASE EVENT DATE: 2017
